FAERS Safety Report 6521502-8 (Version None)
Quarter: 2009Q4

REPORT INFORMATION
  Report Type: 
  Country: None (occurrence: None)
  Receive Date: 20091230
  Receipt Date: 20091222
  Transmission Date: 20100525
  Serious: Yes (Hospitalization)
  Sender: FDA-Public Use
  Company Number: CA-ASTRAZENECA-2009SE31937

PATIENT
  Age: 68 Year
  Sex: Female

DRUGS (5)
  1. CRESTOR [Suspect]
     Route: 048
  2. MAVIK [Concomitant]
     Indication: HYPERTENSION
  3. ADALAT CC [Concomitant]
     Indication: HYPERTENSION
  4. MEVACOR [Concomitant]
     Indication: BLOOD CHOLESTEROL
  5. EZETROL [Concomitant]
     Indication: BLOOD CHOLESTEROL

REACTIONS (3)
  - DIABETES MELLITUS [None]
  - MYALGIA [None]
  - RENAL CANCER [None]
